FAERS Safety Report 24654934 (Version 1)
Quarter: 2024Q4

REPORT INFORMATION
  Report Type: Spontaneous
  Country: US (occurrence: US)
  Receive Date: 20241122
  Receipt Date: 20241122
  Transmission Date: 20250115
  Serious: Yes (Other)
  Sender: MAYNE
  Company Number: US-MAYNE PHARMA-2024MYN000548

PATIENT

DRUGS (1)
  1. ANNOVERA [Suspect]
     Active Substance: ETHINYL ESTRADIOL\SEGESTERONE ACETATE
     Indication: Product used for unknown indication
     Dosage: 0.15MG /0.013MG
     Route: 067
     Dates: start: 202409

REACTIONS (6)
  - Perineal ulceration [Unknown]
  - Acne [Unknown]
  - Nausea [Unknown]
  - Vomiting [Unknown]
  - Pelvic pain [Unknown]
  - Device expulsion [Unknown]

NARRATIVE: CASE EVENT DATE: 20240101
